FAERS Safety Report 6874168-1 (Version None)
Quarter: 2010Q3

REPORT INFORMATION
  Report Type: 
  Country: None (occurrence: None)
  Receive Date: 20100723
  Receipt Date: 20090603
  Transmission Date: 20110219
  Serious: No
  Sender: FDA-Public Use
  Company Number: US-PFIZER INC-2009197379

PATIENT
  Sex: Female
  Weight: 77.1 kg

DRUGS (14)
  1. CHANTIX [Suspect]
     Dosage: 0.5 MG, 2X/DAY
     Dates: start: 20090401
  2. GABAPENTIN [Concomitant]
  3. CYMBALTA [Concomitant]
     Dosage: UNK
  4. OMEPRAZOLE [Concomitant]
     Dosage: UNK
  5. PROMETHAZINE [Concomitant]
     Dosage: UNK
  6. TIZANIDINE HCL [Concomitant]
     Dosage: UNK
  7. DOCUSATE [Concomitant]
     Dosage: UNK
  8. TRAZODONE [Concomitant]
     Dosage: UNK
  9. LEVOTHYROXINE [Concomitant]
     Indication: THYROID DISORDER
     Dosage: UNK
  10. LORATADINE [Concomitant]
     Dosage: UNK
  11. DENAVIR [Concomitant]
     Dosage: UNK
  12. PERCOCET [Concomitant]
     Dosage: UNK
  13. FENTANYL [Concomitant]
     Dosage: UNK
  14. ESOMEPRAZOLE [Concomitant]
     Indication: DYSPEPSIA
     Dosage: UNK

REACTIONS (5)
  - CHEST DISCOMFORT [None]
  - DYSPEPSIA [None]
  - FLATULENCE [None]
  - HEADACHE [None]
  - MIGRAINE [None]
